FAERS Safety Report 20082745 (Version 1)
Quarter: 2021Q4

REPORT INFORMATION
  Report Type: Spontaneous
  Country: DE (occurrence: DE)
  Receive Date: 20211117
  Receipt Date: 20211117
  Transmission Date: 20220303
  Serious: Yes (Other)
  Sender: FDA-Public Use
  Company Number: None

PATIENT
  Age: 53 Year
  Sex: Female

DRUGS (12)
  1. PREGABALIN [Suspect]
     Active Substance: PREGABALIN
     Dosage: 25 MG, 1X/DAY
     Route: 048
     Dates: start: 20210628, end: 20210630
  2. PREGABALIN [Suspect]
     Active Substance: PREGABALIN
     Dosage: 150 MG, 1X/DAY
     Route: 048
     Dates: start: 20210729
  3. TRAMADOL [Suspect]
     Active Substance: TRAMADOL
     Dosage: 50 MG, 1X/DAY
     Route: 048
     Dates: start: 20210805, end: 20210805
  4. TRAMADOL [Suspect]
     Active Substance: TRAMADOL
     Dosage: 100 MG, DAILY
     Route: 048
     Dates: start: 20210806, end: 20210812
  5. TRAMADOL [Suspect]
     Active Substance: TRAMADOL
     Dosage: 200 MG, 1X/DAY
     Route: 048
     Dates: start: 20210813
  6. DEXAMETHASONE [Suspect]
     Active Substance: DEXAMETHASONE
     Dosage: 2 MG, 1X/DAY
     Dates: start: 20210601
  7. METOCLOPRAMIDE [Suspect]
     Active Substance: METOCLOPRAMIDE
     Dosage: 30 MG, 1X/DAY
     Route: 048
     Dates: start: 20210806, end: 20210829
  8. RISPERIDONE [Suspect]
     Active Substance: RISPERIDONE
     Dosage: 2 MG, 1X/DAY
     Route: 048
     Dates: start: 20210601, end: 20210627
  9. RISPERIDONE [Suspect]
     Active Substance: RISPERIDONE
     Dosage: 3 MG, 1X/DAY
     Route: 048
     Dates: start: 20210628
  10. METAMIZOLE [Suspect]
     Active Substance: METAMIZOLE
     Dosage: 1500 MG, 1X/DAY
     Route: 048
     Dates: start: 20210628, end: 20210628
  11. METAMIZOLE [Suspect]
     Active Substance: METAMIZOLE
     Dosage: 2000 MG, 1X/DAY
     Route: 048
     Dates: start: 20210629, end: 20210713
  12. METAMIZOLE [Suspect]
     Active Substance: METAMIZOLE
     Dosage: 5000 MG, 1X/DAY
     Dates: start: 20210714

REACTIONS (4)
  - Gamma-glutamyltransferase increased [Recovering/Resolving]
  - Alanine aminotransferase increased [Recovering/Resolving]
  - Aspartate aminotransferase increased [Recovering/Resolving]
  - Hepatic enzyme increased [Not Recovered/Not Resolved]

NARRATIVE: CASE EVENT DATE: 20210801
